FAERS Safety Report 16123458 (Version 1)
Quarter: 2019Q1

REPORT INFORMATION
  Report Type: Spontaneous
  Country: GB (occurrence: GB)
  Receive Date: 20190327
  Receipt Date: 20190327
  Transmission Date: 20190418
  Serious: Yes (Other)
  Sender: FDA-Public Use
  Company Number: PHHY2019GB065212

PATIENT
  Age: 37 Year
  Sex: Female
  Weight: 66.67 kg

DRUGS (1)
  1. CLARITHROMYCIN. [Suspect]
     Active Substance: CLARITHROMYCIN
     Indication: EAR INFECTION
     Dosage: 500 MG, UNK
     Route: 048
     Dates: start: 20190227

REACTIONS (9)
  - Vaginal infection [Unknown]
  - Insomnia [Unknown]
  - Dizziness [Recovered/Resolved]
  - Pain in extremity [Unknown]
  - Nausea [Recovered/Resolved]
  - Abdominal pain lower [Unknown]
  - Nightmare [Unknown]
  - Anxiety [Unknown]
  - Dysgeusia [Unknown]

NARRATIVE: CASE EVENT DATE: 20190227
